FAERS Safety Report 14384032 (Version 3)
Quarter: 2018Q1

REPORT INFORMATION
  Report Type: Report from Study
  Country: US (occurrence: US)
  Receive Date: 20180115
  Receipt Date: 20180220
  Transmission Date: 20180509
  Serious: Yes (Hospitalization)
  Sender: FDA-Public Use
  Company Number: US-TEVA-2018-US-846403

PATIENT
  Sex: Female

DRUGS (7)
  1. AUSTEDO [Suspect]
     Active Substance: DEUTETRABENAZINE
     Indication: TARDIVE DYSKINESIA
     Route: 065
     Dates: start: 20171115
  2. AUSTEDO [Interacting]
     Active Substance: DEUTETRABENAZINE
     Dosage: 24 MILLIGRAM DAILY;
     Route: 065
     Dates: end: 20171211
  3. BENZTROPINE. [Concomitant]
     Active Substance: BENZTROPINE
     Route: 065
  4. CLOZAPINE. [Concomitant]
     Active Substance: CLOZAPINE
  5. LITHIUM. [Concomitant]
     Active Substance: LITHIUM
     Route: 065
  6. AUSTEDO [Interacting]
     Active Substance: DEUTETRABENAZINE
     Dosage: 12 MILLIGRAM DAILY;
     Route: 065
     Dates: start: 20180115
  7. OXABARBAZPINE [Concomitant]
     Route: 065

REACTIONS (5)
  - Crying [Unknown]
  - Agitation [Unknown]
  - Disorientation [Unknown]
  - Drug interaction [Unknown]
  - Disturbance in attention [Unknown]
